FAERS Safety Report 4582786-9 (Version None)
Quarter: 2005Q1

REPORT INFORMATION
  Report Type: 
  Country: None (occurrence: None)
  Receive Date: 20050121
  Receipt Date: 20041201
  Transmission Date: 20050727
  Serious: Yes (Other)
  Sender: FDA-Public Use
  Company Number: 2004097028

PATIENT
  Age: 46 Year
  Sex: Female
  Weight: 49.8957 kg

DRUGS (4)
  1. RELPAX [Suspect]
     Indication: MIGRAINE
     Dosage: 240 MG (40 MG,1 D),ORAL
     Route: 048
     Dates: start: 20040801, end: 20041122
  2. ULTRACET [Suspect]
     Indication: MIGRAINE
     Dosage: ORAL
     Route: 048
     Dates: start: 20041101
  3. TOPIRAMATE [Concomitant]
  4. ESTRADIOL [Concomitant]

REACTIONS (6)
  - DRUG INEFFECTIVE [None]
  - FEELING DRUNK [None]
  - INTENTIONAL MISUSE [None]
  - NAUSEA [None]
  - SENSATION OF PRESSURE [None]
  - SOMNOLENCE [None]
